FAERS Safety Report 10715341 (Version 1)
Quarter: 2015Q1

REPORT INFORMATION
  Report Type: Not Available
  Country: FR (occurrence: FR)
  Receive Date: 20150116
  Receipt Date: 20150116
  Transmission Date: 20150721
  Serious: Yes (Congenital Anomaly)
  Sender: FDA-Public Use
  Company Number: FR-BEH-2015047782

PATIENT
  Age: 0 Day
  Sex: Male
  Weight: 2.91 kg

DRUGS (4)
  1. RHOPHYLAC [Suspect]
     Active Substance: HUMAN RHO(D) IMMUNE GLOBULIN
     Route: 064
     Dates: start: 20140608, end: 20140608
  2. ZOLOFT [Suspect]
     Active Substance: SERTRALINE HYDROCHLORIDE
     Route: 064
  3. LEVOTHYROX [Suspect]
     Active Substance: LEVOTHYROXINE
     Route: 064
  4. AMOXICILLIN. [Suspect]
     Active Substance: AMOXICILLIN
     Route: 064

REACTIONS (3)
  - Muscle tone disorder [Recovered/Resolved]
  - Neonatal respiratory distress syndrome [Recovered/Resolved]
  - Pyelocaliectasis [Recovered/Resolved]

NARRATIVE: CASE EVENT DATE: 20140808
